FAERS Safety Report 8100044-2 (Version None)
Quarter: 2012Q1

REPORT INFORMATION
  Report Type: 
  Country: None (occurrence: None)
  Receive Date: 20120125
  Receipt Date: 20120117
  Transmission Date: 20120608
  Serious: Yes (Other)
  Sender: FDA-Public Use
  Company Number: DSA_48895_2012

PATIENT
  Age: 54 Year
  Sex: Female
  Weight: 122.4712 kg

DRUGS (8)
  1. WELLBUTRIN [Suspect]
     Indication: PRODUCT USED FOR UNKNOWN INDICATION
     Dosage: 300; 150 MG QD, ORAL
     Route: 048
  2. FUROSEMIDE [Concomitant]
  3. METOPROLOL [Concomitant]
  4. SYNTHROID [Concomitant]
  5. ZOPICLONE [Concomitant]
  6. MICRO-K [Concomitant]
  7. PROZAC [Concomitant]
  8. MICARDIS [Concomitant]

REACTIONS (5)
  - HYPERPHAGIA [None]
  - COMPULSIONS [None]
  - ANGER [None]
  - IMPATIENCE [None]
  - WEIGHT INCREASED [None]
